FAERS Safety Report 8411404-4 (Version None)
Quarter: 2012Q2

REPORT INFORMATION
  Report Type: 
  Country: None (occurrence: None)
  Receive Date: 20120531
  Receipt Date: 20120531
  Transmission Date: 20120825
  Serious: Yes (Hospitalization)
  Sender: FDA-Public Use
  Company Number: None

PATIENT
  Sex: Male
  Weight: 83.9154 kg

DRUGS (1)
  1. SEROQUEL [Suspect]
     Dosage: 400 MG DAILY

REACTIONS (2)
  - DRUG WITHDRAWAL SYNDROME [None]
  - FEELING ABNORMAL [None]
